FAERS Safety Report 23079045 (Version 1)
Quarter: 2023Q4

REPORT INFORMATION
  Report Type: Spontaneous
  Country: US (occurrence: None)
  Receive Date: 20231018
  Receipt Date: 20231018
  Transmission Date: 20240110
  Serious: Yes (Other)
  Sender: FDA-Public Use
  Company Number: None

PATIENT
  Age: 56 Year
  Sex: Female
  Weight: 128.25 kg

DRUGS (1)
  1. MONISTAT 1 COMBINATION PACK [Suspect]
     Active Substance: MICONAZOLE NITRATE
     Indication: Vulvovaginal mycotic infection
     Dosage: OTHER QUANTITY : 1 OVULE;?FREQUENCY : AT BEDTIME;?
     Route: 067

REACTIONS (3)
  - Pain [None]
  - Burning sensation [None]
  - Sleep disorder [None]

NARRATIVE: CASE EVENT DATE: 20231018
